FAERS Safety Report 8018757-X (Version None)
Quarter: 2012Q1

REPORT INFORMATION
  Report Type: 
  Country: None (occurrence: None)
  Receive Date: 20120103
  Receipt Date: 20120103
  Transmission Date: 20120608
  Serious: Yes (Life-Threatening, Other)
  Sender: FDA-Public Use
  Company Number: None

PATIENT
  Age: 84 Year
  Sex: Female
  Weight: 77.11 kg

DRUGS (2)
  1. CIPROFLOXACIN [Suspect]
     Indication: URINARY TRACT INFECTION
     Dosage: 1 TABLET
     Route: 048
  2. METHOTREXATE [Concomitant]

REACTIONS (6)
  - FATIGUE [None]
  - ASTHENIA [None]
  - DELIRIUM [None]
  - HYPERSOMNIA [None]
  - AMNESIA [None]
  - CONFUSIONAL STATE [None]
